FAERS Safety Report 20347499 (Version 1)
Quarter: 2022Q1

REPORT INFORMATION
  Report Type: Spontaneous
  Country: US (occurrence: None)
  Receive Date: 20220117
  Receipt Date: 20220117
  Transmission Date: 20220424
  Serious: Yes (Hospitalization)
  Sender: FDA-Public Use
  Company Number: None

PATIENT
  Age: 79 Year
  Sex: Female
  Weight: 118 kg

DRUGS (1)
  1. SOTROVIMAB [Suspect]
     Active Substance: SOTROVIMAB
     Indication: COVID-19
     Dosage: FREQUENCY : ONCE;?
     Route: 041
     Dates: start: 20220115, end: 20220115

REACTIONS (8)
  - Infusion related reaction [None]
  - Blood pressure decreased [None]
  - Diarrhoea [None]
  - Heart rate decreased [None]
  - Respiratory rate increased [None]
  - Blood sodium decreased [None]
  - Blood creatine increased [None]
  - Blood glucose decreased [None]

NARRATIVE: CASE EVENT DATE: 20220115
